FAERS Safety Report 25653412 (Version 2)
Quarter: 2025Q3

REPORT INFORMATION
  Report Type: Report from Study
  Country: GB (occurrence: GB)
  Receive Date: 20250807
  Receipt Date: 20250815
  Transmission Date: 20251021
  Serious: Yes (Hospitalization, Other)
  Sender: AMGEN
  Company Number: GB-AMGEN-GBRSL2025121223

PATIENT
  Age: 63 Year
  Sex: Female

DRUGS (5)
  1. ADALIMUMAB [Suspect]
     Active Substance: ADALIMUMAB
     Indication: Crohn^s disease
     Dosage: 40 MILLIGRAM, Q2WK
     Route: 058
     Dates: start: 20210422
  2. ADALIMUMAB [Suspect]
     Active Substance: ADALIMUMAB
     Dosage: 40 MILLIGRAM, Q2WK (THERAPY RESTARTED)
     Route: 058
  3. ADALIMUMAB [Suspect]
     Active Substance: ADALIMUMAB
     Dosage: 40 MILLIGRAM, Q2WK
     Route: 058
  4. AMLODIPINE [Concomitant]
     Active Substance: AMLODIPINE BESYLATE
     Indication: Vertigo
     Route: 065
  5. CITALOPRAM [Concomitant]
     Active Substance: CITALOPRAM
     Indication: Vertigo
     Route: 065

REACTIONS (8)
  - Lower respiratory tract infection [Unknown]
  - Kidney infection [Unknown]
  - Bronchiolitis [Unknown]
  - Labyrinthitis [Unknown]
  - Device difficult to use [Unknown]
  - Malaise [Recovered/Resolved]
  - Drug dose omission by device [Unknown]
  - Vertigo [Unknown]

NARRATIVE: CASE EVENT DATE: 20250727
